FAERS Safety Report 4991582-X (Version None)
Quarter: 2006Q2

REPORT INFORMATION
  Report Type: 
  Country: None (occurrence: None)
  Receive Date: 20060502
  Receipt Date: 20060421
  Transmission Date: 20061013
  Serious: Yes (Other)
  Sender: FDA-Public Use
  Company Number: 2006054181

PATIENT
  Age: 36 Year
  Sex: Female

DRUGS (2)
  1. ZOLOFT [Suspect]
     Indication: ANXIETY
     Dosage: 175-200MG (1 D), ORAL
     Route: 048
  2. ZOLOFT [Suspect]
     Indication: PANIC DISORDER
     Dosage: 175-200MG (1 D), ORAL
     Route: 048

REACTIONS (5)
  - BACK PAIN [None]
  - FATIGUE [None]
  - MYOPERICARDITIS [None]
  - POLYMYALGIA RHEUMATICA [None]
  - PYREXIA [None]
